FAERS Safety Report 8345777-8 (Version None)
Quarter: 2012Q2

REPORT INFORMATION
  Report Type: 
  Country: None (occurrence: None)
  Receive Date: 20120508
  Receipt Date: 20120425
  Transmission Date: 20120825
  Serious: Yes (Disabling)
  Sender: FDA-Public Use
  Company Number: IE-MYLANLABS-2012S1008571

PATIENT
  Age: 75 Year
  Sex: Male
  Weight: 78.7 kg

DRUGS (8)
  1. SOTOGER [Concomitant]
     Indication: PRODUCT USED FOR UNKNOWN INDICATION
     Route: 048
  2. CITALOPRAM HYDROBROMIDE [Concomitant]
     Indication: PRODUCT USED FOR UNKNOWN INDICATION
     Route: 048
  3. PROSCAR [Concomitant]
     Indication: PRODUCT USED FOR UNKNOWN INDICATION
     Route: 048
  4. BACLOFEN [Suspect]
     Indication: PAIN IN EXTREMITY
     Route: 048
     Dates: start: 20120214, end: 20120220
  5. BACLOFEN [Suspect]
     Indication: EYE PAIN
     Route: 048
     Dates: start: 20120214, end: 20120220
  6. BACLOFEN [Suspect]
     Route: 048
     Dates: start: 20120210, end: 20120213
  7. BACLOFEN [Suspect]
     Route: 048
     Dates: start: 20120210, end: 20120213
  8. CAPRIN [Concomitant]
     Indication: PRODUCT USED FOR UNKNOWN INDICATION
     Route: 048

REACTIONS (4)
  - HYPOTENSION [None]
  - MOBILITY DECREASED [None]
  - INCONTINENCE [None]
  - SOMNOLENCE [None]
